FAERS Safety Report 9265780 (Version 1)
Quarter: 2013Q2

REPORT INFORMATION
  Report Type: Spontaneous
  Country: US (occurrence: US)
  Receive Date: 20130501
  Receipt Date: 20130501
  Transmission Date: 20140414
  Serious: Yes (Death, Hospitalization)
  Sender: FDA-Public Use
  Company Number: US-GLAXOSMITHKLINE-A1021150A

PATIENT
  Sex: Male

DRUGS (3)
  1. AVANDIA [Suspect]
     Indication: TYPE 2 DIABETES MELLITUS
     Dosage: 8MG PER DAY
     Route: 048
     Dates: end: 20080527
  2. MAALOX [Concomitant]
  3. UNSPECIFIED MEDICATIONS [Concomitant]

REACTIONS (4)
  - Cardiac arrest [Fatal]
  - Cardiac failure congestive [Fatal]
  - Pneumonia [Unknown]
  - Cerebrovascular accident [Unknown]
